FAERS Safety Report 12052072 (Version 1)
Quarter: 2016Q1

REPORT INFORMATION
  Report Type: Spontaneous
  Country: US (occurrence: None)
  Receive Date: 20160208
  Receipt Date: 20160208
  Transmission Date: 20160526
  Serious: No
  Sender: FDA-Public Use
  Company Number: None

PATIENT
  Age: 16 Year
  Sex: Male
  Weight: 59.88 kg

DRUGS (1)
  1. ZYPREXA [Suspect]
     Active Substance: OLANZAPINE
     Dosage: 5 MG/1 PILL BID ORAL
     Route: 048
     Dates: start: 20160107, end: 20160112

REACTIONS (1)
  - Sedation [None]

NARRATIVE: CASE EVENT DATE: 20160112
